FAERS Safety Report 10533491 (Version 2)
Quarter: 2014Q4

REPORT INFORMATION
  Report Type: Spontaneous
  Country: SI (occurrence: SI)
  Receive Date: 20141022
  Receipt Date: 20141211
  Transmission Date: 20150529
  Serious: Yes (Other)
  Sender: FDA-Public Use
  Company Number: PHHY2014SI134930

PATIENT
  Sex: Male

DRUGS (1)
  1. ZOMETA [Suspect]
     Active Substance: ZOLEDRONIC ACID
     Indication: PLASMA CELL MYELOMA
     Route: 065
     Dates: start: 201211

REACTIONS (11)
  - Osteonecrosis of jaw [Unknown]
  - Fracture [Unknown]
  - Erythema [Unknown]
  - Mass [Unknown]
  - Gingivitis [Unknown]
  - Pain [Unknown]
  - Lymphadenopathy [Unknown]
  - Lymph node pain [Unknown]
  - Swelling [Unknown]
  - Fistula [Unknown]
  - Exposed bone in jaw [Unknown]
